FAERS Safety Report 9159302 (Version 1)
Quarter: 2013Q1

REPORT INFORMATION
  Report Type: Spontaneous
  Country: US (occurrence: US)
  Receive Date: 20130313
  Receipt Date: 20130313
  Transmission Date: 20140127
  Serious: Yes (Other)
  Sender: FDA-Public Use
  Company Number: US-JNJFOC-20130303744

PATIENT
  Age: 48 Year
  Sex: Female
  Weight: 52.16 kg

DRUGS (2)
  1. BENADRYL [Suspect]
     Indication: PRODUCT USED FOR UNKNOWN INDICATION
     Dosage: 2 TABLETS 2 TIMES
     Route: 048
     Dates: start: 20100930, end: 20100930
  2. BETA BLOCKING AGENTS [Concomitant]
     Route: 065

REACTIONS (4)
  - Laryngotracheal oedema [Recovered/Resolved]
  - Dyspnoea [Unknown]
  - Urticaria [Unknown]
  - Reaction to drug excipients [Unknown]
